FAERS Safety Report 26108763 (Version 2)
Quarter: 2025Q4

REPORT INFORMATION
  Report Type: Spontaneous
  Country: JP (occurrence: JP)
  Receive Date: 20251201
  Receipt Date: 20251223
  Transmission Date: 20260118
  Serious: Yes (Death, Other)
  Sender: ALEXION PHARMACEUTICALS
  Company Number: JP-AstraZeneca-CH-01004121A

PATIENT
  Age: 51 Year
  Sex: Female

DRUGS (3)
  1. IMFINZI [Suspect]
     Active Substance: DURVALUMAB
     Indication: Endometrial cancer
     Dosage: UNK
  2. DOCETAXEL [Suspect]
     Active Substance: DOCETAXEL
     Dosage: UNK
     Route: 065
  3. CYCLOPHOSPHAMIDE [Suspect]
     Active Substance: CYCLOPHOSPHAMIDE
     Dosage: UNK
     Route: 065

REACTIONS (1)
  - Malignant neoplasm progression [Fatal]
